FAERS Safety Report 9628713 (Version 1)
Quarter: 2013Q4

REPORT INFORMATION
  Report Type: Spontaneous
  Country: US (occurrence: US)
  Receive Date: 20131017
  Receipt Date: 20131017
  Transmission Date: 20140711
  Serious: Yes (Hospitalization)
  Sender: FDA-Public Use
  Company Number: US-AMGEN-USASP2013071693

PATIENT
  Age: 64 Year
  Sex: Male

DRUGS (3)
  1. NEULASTA [Suspect]
     Indication: PRODUCT USED FOR UNKNOWN INDICATION
     Dosage: UNK
     Route: 065
     Dates: start: 20130823
  2. BENDAMUSTINE [Concomitant]
     Indication: LYMPHOMA
     Dosage: UNK
  3. RITUXIMAB [Concomitant]
     Indication: LYMPHOMA
     Dosage: UNK

REACTIONS (2)
  - Febrile neutropenia [Unknown]
  - Pancytopenia [Unknown]
